FAERS Safety Report 5635540-0 (Version None)
Quarter: 2008Q1

REPORT INFORMATION
  Report Type: 
  Country: None (occurrence: None)
  Receive Date: 20080222
  Receipt Date: 20080213
  Transmission Date: 20080703
  Serious: Yes (Hospitalization)
  Sender: FDA-Public Use
  Company Number: CA-PFIZER INC-2008014791

PATIENT
  Age: 80 Year
  Sex: Male

DRUGS (7)
  1. LIPITOR [Suspect]
     Route: 048
     Dates: start: 20080101, end: 20080201
  2. TEGRETOL [Interacting]
     Dosage: TEXT:100 MG
  3. SYNTHROID [Concomitant]
     Dosage: TEXT:0.05 MG-FREQ:DAILY
  4. EPIVAL [Concomitant]
     Dosage: TEXT:500 MG
  5. EPIVAL [Concomitant]
     Dosage: TEXT:250 MG-FREQ:AT BEDTIME
  6. ASAPHEN [Concomitant]
     Dosage: TEXT:80 MG-FREQ:AT BREAKFAST
  7. SOTALOL [Concomitant]
     Dosage: FREQ:TAKEN IN MORNING AND AT NIGHT

REACTIONS (8)
  - DIARRHOEA [None]
  - DRUG INTERACTION [None]
  - FALL [None]
  - FEELING ABNORMAL [None]
  - HYPOAESTHESIA [None]
  - PALPITATIONS [None]
  - VOMITING [None]
  - WRONG DRUG ADMINISTERED [None]
